FAERS Safety Report 16580930 (Version 1)
Quarter: 2019Q3

REPORT INFORMATION
  Report Type: Spontaneous
  Country: BR (occurrence: BR)
  Receive Date: 20190716
  Receipt Date: 20190716
  Transmission Date: 20191004
  Serious: Yes (Other)
  Sender: FDA-Public Use
  Company Number: BR-VIIV HEALTHCARE LIMITED-BR2019AMR117290

PATIENT
  Sex: Male

DRUGS (8)
  1. TENOFOVIR DISOPROXIL FUMARATE. [Suspect]
     Active Substance: TENOFOVIR DISOPROXIL FUMARATE
     Indication: PRODUCT USED FOR UNKNOWN INDICATION
     Dosage: UNK
     Dates: start: 201811
  2. LAMIVUDINE. [Suspect]
     Active Substance: LAMIVUDINE
     Indication: HIV INFECTION
     Dosage: UNK
  3. EFAVIRENZ. [Suspect]
     Active Substance: EFAVIRENZ
     Indication: PRODUCT USED FOR UNKNOWN INDICATION
     Dosage: UNK
     Dates: start: 201811
  4. METHOTREXATE. [Suspect]
     Active Substance: METHOTREXATE
     Indication: PRODUCT USED FOR UNKNOWN INDICATION
     Dosage: UNK
  5. DOLUTEGRAVIR [Suspect]
     Active Substance: DOLUTEGRAVIR
     Indication: HIV INFECTION
     Dosage: UNK
  6. MELOXICAM. [Suspect]
     Active Substance: MELOXICAM
     Indication: PRODUCT USED FOR UNKNOWN INDICATION
     Dosage: UNK
  7. FOLIC ACID. [Suspect]
     Active Substance: FOLIC ACID
     Indication: PRODUCT USED FOR UNKNOWN INDICATION
     Dosage: UNK
  8. PREDNISOLONE. [Suspect]
     Active Substance: PREDNISOLONE
     Indication: PRODUCT USED FOR UNKNOWN INDICATION
     Dosage: UNK

REACTIONS (18)
  - Rheumatic disorder [Unknown]
  - Arthritis infective [Unknown]
  - Pleural effusion [Unknown]
  - Neurosyphilis [Unknown]
  - White blood cell disorder [Unknown]
  - Wound secretion [Unknown]
  - Diarrhoea [Unknown]
  - Pain [Unknown]
  - Psoriatic arthropathy [Unknown]
  - Joint swelling [Unknown]
  - C-reactive protein [Unknown]
  - Colitis microscopic [Unknown]
  - Spinal manipulation [Unknown]
  - Condition aggravated [Unknown]
  - Gait disturbance [Unknown]
  - CD4 lymphocytes increased [Unknown]
  - Pericardial effusion [Unknown]
  - Back pain [Unknown]

NARRATIVE: CASE EVENT DATE: 201901
